FAERS Safety Report 8296191-5 (Version None)
Quarter: 2012Q2

REPORT INFORMATION
  Report Type: 
  Country: None (occurrence: None)
  Receive Date: 20120418
  Receipt Date: 20120412
  Transmission Date: 20120825
  Serious: Yes (Death, Hospitalization)
  Sender: FDA-Public Use
  Company Number: JP-EISAI INC-E2020-10057-SPO-JP

PATIENT
  Sex: Male

DRUGS (8)
  1. GASMOTIN [Concomitant]
     Route: 048
     Dates: end: 20111010
  2. ARICEPT [Suspect]
     Route: 048
     Dates: start: 20110921, end: 20111004
  3. ZOLOFT [Suspect]
     Route: 048
     Dates: start: 20110912, end: 20111010
  4. ARICEPT [Suspect]
     Route: 048
     Dates: start: 20111005, end: 20111010
  5. CANDESARTAN CILEXETIL [Concomitant]
     Route: 048
     Dates: end: 20111010
  6. SENNOSIDE A+B CALCIUM [Concomitant]
     Route: 048
     Dates: end: 20111010
  7. RHYTHMY [Concomitant]
     Route: 048
     Dates: end: 20111010
  8. MAGMITT [Concomitant]
     Route: 048
     Dates: end: 20111010

REACTIONS (4)
  - CIRCULATORY COLLAPSE [None]
  - HYPERNATRAEMIA [None]
  - LIVER DISORDER [None]
  - SHOCK [None]
